FAERS Safety Report 7384227-5 (Version None)
Quarter: 2011Q1

REPORT INFORMATION
  Report Type: 
  Country: None (occurrence: None)
  Receive Date: 20110330
  Receipt Date: 20110325
  Transmission Date: 20110831
  Serious: Yes (Other)
  Sender: FDA-Public Use
  Company Number: US-MERCK-1102USA03311

PATIENT
  Age: 34 Year
  Sex: Female

DRUGS (2)
  1. IVEMEND [Suspect]
     Indication: PROPHYLAXIS OF NAUSEA AND VOMITING
     Route: 041
     Dates: start: 20110126, end: 20110126
  2. IVEMEND [Suspect]
     Route: 041
     Dates: start: 20110209, end: 20110209

REACTIONS (5)
  - INFUSION SITE PAIN [None]
  - INFUSION SITE ERYTHEMA [None]
  - INFUSION SITE SWELLING [None]
  - INFUSION SITE URTICARIA [None]
  - THROMBOSIS [None]
